FAERS Safety Report 4366757-3 (Version None)
Quarter: 2004Q2

REPORT INFORMATION
  Report Type: 
  Country: None (occurrence: None)
  Receive Date: 20040528
  Receipt Date: 20021107
  Transmission Date: 20050107
  Serious: Yes (Death, Hospitalization)
  Sender: FDA-Public Use
  Company Number: PHHO2002FR08646

PATIENT
  Age: 51 Year
  Sex: Male
  Weight: 77 kg

DRUGS (18)
  1. RAD001 [Suspect]
     Indication: PANCREAS ISLET CELL TRANSPLANT
     Dosage: 3 MG / DAY
     Route: 048
     Dates: start: 20020914, end: 20021009
  2. RAD001 [Suspect]
     Dosage: .5 MG, BID
     Route: 048
     Dates: start: 20021025, end: 20021028
  3. RAD001 [Suspect]
     Dosage: 2 MG / DAY
     Route: 048
     Dates: start: 20021010, end: 20021024
  4. NEORAL [Suspect]
     Indication: PANCREAS ISLET CELL TRANSPLANT
     Dosage: 75 MG, BID
     Route: 048
     Dates: start: 20020914, end: 20021024
  5. NEORAL [Suspect]
     Dosage: 50 MG, BID
     Route: 048
     Dates: start: 20021025
  6. TRENTAL [Concomitant]
  7. VADILEX [Concomitant]
  8. ASPIRIN [Concomitant]
  9. PRIVINIL [Concomitant]
  10. OROCAL D3 [Concomitant]
  11. TAHOR [Concomitant]
  12. FELODIPINE [Concomitant]
  13. BUMEX [Concomitant]
  14. RIVOTRIL [Concomitant]
  15. ALLOPURINOL TAB [Concomitant]
  16. TEGELINE [Suspect]
  17. SIMULECT / CHI 621A / SDZ CHI 621 [Suspect]
     Indication: PANCREAS ISLET CELL TRANSPLANT
     Dosage: 20 MG, DAY 0
     Route: 042
  18. SIMULECT / CHI 621A / SDZ CHI 621 [Suspect]
     Dosage: 20 MG, DAY 4
     Route: 042

REACTIONS (9)
  - CARDIAC ARREST [None]
  - CIRCULATORY COLLAPSE [None]
  - HYPOXIA [None]
  - LUNG INFECTION [None]
  - OPPORTUNISTIC INFECTION [None]
  - PSEUDOMONAS INFECTION [None]
  - PYREXIA [None]
  - RENAL FAILURE ACUTE [None]
  - STAPHYLOCOCCAL BACTERAEMIA [None]
